FAERS Safety Report 24398595 (Version 1)
Quarter: 2024Q4

REPORT INFORMATION
  Report Type: Spontaneous
  Country: US (occurrence: US)
  Receive Date: 20241004
  Receipt Date: 20241004
  Transmission Date: 20250114
  Serious: No
  Sender: PERRIGO
  Company Number: US-PERRIGO-24US002378

PATIENT
  Age: 3 Year
  Sex: Female

DRUGS (2)
  1. CHILDRENS CETIRIZINE HYDROCHLORIDE ALLERGY [Suspect]
     Active Substance: CETIRIZINE HYDROCHLORIDE
     Indication: Rhinorrhoea
     Dosage: 2.5 ML, SINGLE
     Route: 048
     Dates: start: 20240222, end: 20240222
  2. CHILDRENS CETIRIZINE HYDROCHLORIDE ALLERGY [Suspect]
     Active Substance: CETIRIZINE HYDROCHLORIDE
     Indication: Hypersensitivity

REACTIONS (1)
  - Exposure to unspecified agent [Unknown]

NARRATIVE: CASE EVENT DATE: 20240222
